FAERS Safety Report 19536215 (Version 1)
Quarter: 2021Q3

REPORT INFORMATION
  Report Type: Spontaneous
  Country: SI (occurrence: SI)
  Receive Date: 20210714
  Receipt Date: 20210714
  Transmission Date: 20211014
  Serious: Yes (Disabling)
  Sender: FDA-Public Use
  Company Number: None

PATIENT
  Age: 34 Year
  Sex: Female

DRUGS (2)
  1. KUTERID (BETAMETAZON DIPROPIONAT) [Suspect]
     Active Substance: BETAMETHASONE DIPROPIONATE
     Indication: DERMATITIS ATOPIC
     Route: 058
     Dates: start: 20171025, end: 20210201
  2. AFLODERM [Concomitant]

REACTIONS (21)
  - Eye swelling [None]
  - Skin burning sensation [None]
  - Condition aggravated [None]
  - Dermatitis [None]
  - Insomnia [None]
  - Alopecia [None]
  - Skin exfoliation [None]
  - Pain of skin [None]
  - Hyperaesthesia [None]
  - Red man syndrome [None]
  - Dermatitis atopic [None]
  - Tremor [None]
  - Steroid withdrawal syndrome [None]
  - Skin hyperpigmentation [None]
  - Pruritus [None]
  - Drug dependence [None]
  - Body temperature fluctuation [None]
  - Emotional distress [None]
  - Loss of therapeutic response [None]
  - Secretion discharge [None]
  - Hyperhidrosis [None]

NARRATIVE: CASE EVENT DATE: 20210205
